FAERS Safety Report 5956547-X (Version None)
Quarter: 2008Q4

REPORT INFORMATION
  Report Type: 
  Country: None (occurrence: None)
  Receive Date: 20081117
  Receipt Date: 20081117
  Transmission Date: 20090506
  Serious: Yes (Disabling)
  Sender: FDA-Public Use
  Company Number: None

PATIENT
  Sex: Male
  Weight: 89.3586 kg

DRUGS (1)
  1. LUPRON [Suspect]
     Indication: PROSTATE CANCER
     Dosage: SHOT  (DURATION: ONE SHOT )
     Dates: start: 20080201

REACTIONS (11)
  - ARTHRALGIA [None]
  - BONE PAIN [None]
  - BREAST SWELLING [None]
  - CONSTIPATION [None]
  - ERECTILE DYSFUNCTION [None]
  - FATIGUE [None]
  - HOT FLUSH [None]
  - MOVEMENT DISORDER [None]
  - TENDON PAIN [None]
  - URINE OUTPUT INCREASED [None]
  - WEIGHT [None]
